FAERS Safety Report 4644708-1 (Version None)
Quarter: 2005Q2

REPORT INFORMATION
  Report Type: 
  Country: None (occurrence: None)
  Receive Date: 20050426
  Receipt Date: 20050418
  Transmission Date: 20051028
  Serious: Yes (Other)
  Sender: FDA-Public Use
  Company Number: US-JNJFOC-20050404931

PATIENT
  Sex: Female
  Weight: 12.25 kg

DRUGS (2)
  1. CONCENTRATED MOTRIN INFANTS'  DYE-FREE [Suspect]
     Route: 049
  2. CONCENTRATED MOTRIN INFANTS'  DYE-FREE [Suspect]
     Route: 049

REACTIONS (7)
  - CONDITION AGGRAVATED [None]
  - DYSPHAGIA [None]
  - GINGIVAL BLISTER [None]
  - ORAL MUCOSAL BLISTERING [None]
  - PYREXIA [None]
  - SCREAMING [None]
  - SWELLING FACE [None]
